FAERS Safety Report 20876028 (Version 1)
Quarter: 2022Q2

REPORT INFORMATION
  Report Type: Spontaneous
  Country: US (occurrence: US)
  Receive Date: 20220526
  Receipt Date: 20220526
  Transmission Date: 20220721
  Serious: No
  Sender: FDA-Public Use
  Company Number: US-drreddys-LIT/USA/22/0150190

PATIENT
  Age: 2 Year
  Sex: Female

DRUGS (7)
  1. TOPOTECAN HYDROCHLORIDE [Suspect]
     Active Substance: TOPOTECAN HYDROCHLORIDE
     Indication: Disease recurrence
     Dosage: 0.4 MG/DOSE EVERY 2 WEEKS FOR EIGHT DOSES AND THEN EVERY MONTH, 23 DOSES OF TOPOTECAN
  2. DOXORUBICIN HYDROCHLORIDE [Concomitant]
     Active Substance: DOXORUBICIN HYDROCHLORIDE
     Indication: Pleuropulmonary blastoma
  3. IFOSFAMIDE [Concomitant]
     Active Substance: IFOSFAMIDE
     Indication: Pleuropulmonary blastoma
     Dosage: TWO CYCLES
  4. VINCRISTINE [Concomitant]
     Active Substance: VINCRISTINE
     Indication: Pleuropulmonary blastoma
     Dosage: TWO CYCLES
  5. Cactinomycin [actinomycin] [Concomitant]
     Indication: Pleuropulmonary blastoma
  6. DEXRAZOXANE [Concomitant]
     Active Substance: DEXRAZOXANE
     Indication: Pleuropulmonary blastoma
  7. IRINOTECAN [Concomitant]
     Active Substance: IRINOTECAN
     Indication: Pleuropulmonary blastoma

REACTIONS (1)
  - Headache [Unknown]
